FAERS Safety Report 9553365 (Version 1)
Quarter: 2013Q3

REPORT INFORMATION
  Report Type: Spontaneous
  Country: US (occurrence: None)
  Receive Date: 20130913
  Receipt Date: 20130913
  Transmission Date: 20140515
  Serious: Yes (Other)
  Sender: FDA-Public Use
  Company Number: 1000042696

PATIENT
  Age: 69 Year
  Sex: Female
  Weight: 67.4 kg

DRUGS (26)
  1. CELEXA [Suspect]
     Indication: DEPRESSION
     Route: 048
     Dates: start: 20090129, end: 20130211
  2. SPIRIVA(TIOTROPIUM BROMIDE)(TIOTROPIUM BROMIDE) [Concomitant]
  3. IRON(IRON)(IRON) [Concomitant]
  4. ADVAIR(FLUTICASONE, SALMETEROL)(FLUTICASONE SALMETEROL) [Concomitant]
  5. VITAMIN D(VITAMIN D)(VITAMIN D) [Concomitant]
  6. CALCIUM(CALCIUM)(CALCIUM) [Concomitant]
  7. FLONASE(FLUTICASONE PROPIONATE0(NASAL DROPS(INCLUDING NASAL SPRAY)(FLUTICASONE PROPIONATE) [Concomitant]
  8. LISINOPRIL(LISINOPRIL)(LISINOPRIL) [Concomitant]
  9. CHLORTHALIDONE(CHLORTHALIDONE)(CHLORTHALIDONE) [Concomitant]
  10. ALPRAZOLAM(ALPRAZOLAM)(TABLETS(ALPRAZOLAM) [Concomitant]
  11. FOSAMAX(ALENDRONATE SODIUM)(TABLETS)(ALENDRONATE SODIUM) [Concomitant]
  12. DIPHENHYDRAMINE HCL(DIPHENHYDRAMINE HYDROCHLORIDE)(DIPHENHYDRAMINE HYDROCHLORIDE) [Concomitant]
  13. VENTOLIN (ALB UTEROL)(ALB UTEROL) [Concomitant]
  14. SODIUM CHLORIDE(SODIUM CHLORIDE)(INJECTION)(SODIUM CHLORIDE( [Concomitant]
  15. TYLENOL(PARACETAMOL)(PARACETAMOL) [Concomitant]
  16. LOVENOX(ENOXAPARIN SODIUM)(INJECTION)(ENOXAPARIN SODIUM) [Concomitant]
  17. LOPRESSOR(METOPROLOL TARTRATE)(METOPROLOL TARTRATE) [Concomitant]
  18. DULCOLAX(BISACODYL)(BISACODYL) [Concomitant]
  19. MAGNESIUM HYDROXIDE (MAGNESIUM HYDROXIDE)(MAGNESIUM HYDROXIDE) [Concomitant]
  20. MYLANTA(ALUMINUM HYDROXIDE, MAGNESIUM HYDROXIDE, SIMETHICONE)(ALUMINUM HYDROXIDE, MAGNESIUM HYDROXIDE SIMETHICONE) [Concomitant]
  21. PROVENTIL(ALBUTEROL)(ALBUTEROL) [Concomitant]
  22. SOLUMEDROL(METHYLPREDNISOLONE SODIUM SUCCINATE)(INJECTION)(METHYLPREDNISOLONE SODIUM SUCCINATE) [Concomitant]
  23. DUONEB(ALBUTEROL, IPRATROPIM BROMIDE)(ALBUTEROL, IPRATROPIUM BROMIDE) [Concomitant]
  24. CEFTRIAXONE(CEFTRIAXONE)(INJECTION)(CEFTRIAXONE) [Concomitant]
  25. AZITHROMYCIN(AZITHROMYCIN)(AZITHROMYCIN) [Concomitant]
  26. POTASSIUM CHLORIDE (POTASSIUM CHLORIDE)(POTASSIUM CHLORIDE) [Concomitant]

REACTIONS (1)
  - Electrocardiogram QT prolonged [None]
